FAERS Safety Report 10405431 (Version 2)
Quarter: 2014Q3

REPORT INFORMATION
  Report Type: Spontaneous
  Country: US (occurrence: US)
  Receive Date: 20140825
  Receipt Date: 20140912
  Transmission Date: 20150326
  Serious: Yes (Hospitalization)
  Sender: FDA-Public Use
  Company Number: US-UNITED THERAPEUTICS-UNT-2014-006047

PATIENT
  Age: 27 Year
  Sex: Female
  Weight: 77.98 kg

DRUGS (2)
  1. ADCIRCA [Concomitant]
     Active Substance: TADALAFIL
     Indication: PRODUCT USED FOR UNKNOWN INDICATION
  2. REMODULIN [Suspect]
     Active Substance: TREPROSTINIL
     Indication: PULMONARY ARTERIAL HYPERTENSION
     Dosage: 0.13875 ?G/KG, CONTINUING
     Route: 058
     Dates: start: 20131021

REACTIONS (8)
  - Drug dose omission [Unknown]
  - Dyspnoea [Unknown]
  - Diarrhoea [Unknown]
  - Vomiting [Unknown]
  - Chest pain [Unknown]
  - Infusion site pain [Unknown]
  - Nausea [Unknown]
  - Accidental overdose [Unknown]

NARRATIVE: CASE EVENT DATE: 201408
